FAERS Safety Report 5135530-0 (Version None)
Quarter: 2006Q4

REPORT INFORMATION
  Report Type: 
  Country: None (occurrence: None)
  Receive Date: 20061024
  Receipt Date: 20061024
  Transmission Date: 20070319
  Serious: Yes (Life-Threatening, Hospitalization)
  Sender: FDA-Public Use
  Company Number: None

PATIENT
  Age: 81 Year
  Sex: Female
  Weight: 69.8539 kg

DRUGS (7)
  1. LIPOSOMAL DOXORUBICIN 2MG/ML TIBOTEC [Suspect]
     Indication: BREAST CANCER METASTATIC
     Dosage: 60 MG X 1 IV DRIP
     Route: 041
     Dates: start: 20061003, end: 20061003
  2. PROCHLORPERAZINE [Concomitant]
  3. LORAZEPAM [Concomitant]
  4. LISINOPRIL [Concomitant]
  5. OMEPRAZOLE [Concomitant]
  6. LOPERAMIDE [Concomitant]
  7. ACETAMINOPHEN [Concomitant]

REACTIONS (2)
  - CARDIAC FAILURE CONGESTIVE [None]
  - MYOCARDIAL INFARCTION [None]
